FAERS Safety Report 17184001 (Version 1)
Quarter: 2019Q4

REPORT INFORMATION
  Report Type: Spontaneous
  Country: US (occurrence: US)
  Receive Date: 20191220
  Receipt Date: 20191220
  Transmission Date: 20200122
  Serious: No
  Sender: FDA-Public Use
  Company Number: US-RECKITT BENCKISER HEALTHCARE INT LIMITED-RB-83557-2019

PATIENT
  Age: 49 Year
  Sex: Male

DRUGS (3)
  1. SAMBUCOL                           /08306801/ [Concomitant]
     Indication: PRODUCT USED FOR UNKNOWN INDICATION
     Dosage: UNK
     Route: 065
  2. DELSYM [Suspect]
     Active Substance: DEXTROMETHORPHAN
     Indication: PRODUCT USED FOR UNKNOWN INDICATION
     Dosage: 80 MILLILITER
     Route: 065
     Dates: start: 20190206
  3. METFORMIN [Concomitant]
     Active Substance: METFORMIN HYDROCHLORIDE
     Indication: PRODUCT USED FOR UNKNOWN INDICATION
     Dosage: UNK
     Route: 065

REACTIONS (5)
  - Overdose [Recovering/Resolving]
  - Feeling hot [Recovering/Resolving]
  - Product administration error [Recovering/Resolving]
  - Dizziness [Recovering/Resolving]
  - Incorrect product administration duration [Recovering/Resolving]

NARRATIVE: CASE EVENT DATE: 20190206
